FAERS Safety Report 6611353-8 (Version None)
Quarter: 2010Q1

REPORT INFORMATION
  Report Type: 
  Country: None (occurrence: None)
  Receive Date: 20100301
  Receipt Date: 20100301
  Transmission Date: 20100710
  Serious: Yes (Hospitalization)
  Sender: FDA-Public Use
  Company Number: None

PATIENT
  Sex: Male
  Weight: 101.1521 kg

DRUGS (5)
  1. THALOMID [Suspect]
     Indication: MULTIPLE MYELOMA
     Dosage: 50 MG QHS PO
     Route: 048
     Dates: start: 20080101
  2. JANUVIA [Concomitant]
  3. GLIMEPIRIDE [Concomitant]
  4. GLUCOPHAGE [Concomitant]
  5. FUROSEMIDE [Concomitant]

REACTIONS (1)
  - PNEUMONIA [None]
